FAERS Safety Report 7795912-5 (Version None)
Quarter: 2011Q4

REPORT INFORMATION
  Report Type: 
  Country: None (occurrence: None)
  Receive Date: 20111004
  Receipt Date: 20110922
  Transmission Date: 20120403
  Serious: Yes (Other)
  Sender: FDA-Public Use
  Company Number: US-ELI_LILLY_AND_COMPANY-US201109007226

PATIENT
  Age: 91 Year
  Sex: Female

DRUGS (4)
  1. FORTEO [Suspect]
     Indication: OSTEOPOROSIS
     Dosage: 20 UG, QD
  2. OSCAL                              /00108001/ [Concomitant]
  3. ASPIRIN [Concomitant]
  4. VITAMINS NOS [Concomitant]

REACTIONS (2)
  - PELVIC FRACTURE [None]
  - GAIT DISTURBANCE [None]
